FAERS Safety Report 5529666-X (Version None)
Quarter: 2007Q4

REPORT INFORMATION
  Report Type: 
  Country: None (occurrence: None)
  Receive Date: 20071129
  Receipt Date: 20071119
  Transmission Date: 20080405
  Serious: Yes (Hospitalization)
  Sender: FDA-Public Use
  Company Number: US-PFIZER INC-2007097568

PATIENT
  Age: 89 Year
  Sex: Female
  Weight: 64 kg

DRUGS (16)
  1. AROMASIN [Suspect]
     Indication: BREAST CANCER
     Route: 048
  2. LIPITOR [Suspect]
  3. TOPROL-XL [Suspect]
  4. GEMFIBROZIL [Suspect]
  5. LISINOPRIL AND HYDROCHLOROTHIAZIDE [Suspect]
  6. ASPIRIN [Concomitant]
  7. CALCIUM [Concomitant]
  8. NORVASC [Concomitant]
  9. PLAVIX [Concomitant]
  10. CHONDROITIN [Concomitant]
  11. LEVOTHYROXINE SODIUM [Concomitant]
  12. LIDODERM [Concomitant]
  13. VITAMIN CAP [Concomitant]
  14. OMEGA 3 [Concomitant]
  15. SALICYLATES [Concomitant]
  16. ZETIA [Concomitant]

REACTIONS (5)
  - BLOOD CREATININE INCREASED [None]
  - CONFUSIONAL STATE [None]
  - FATIGUE [None]
  - HYPOACUSIS [None]
  - VISION BLURRED [None]
